FAERS Safety Report 4622484-6 (Version None)
Quarter: 2005Q1

REPORT INFORMATION
  Report Type: 
  Country: None (occurrence: None)
  Receive Date: 20050325
  Receipt Date: 20050325
  Transmission Date: 20050727
  Serious: Yes (Life-Threatening)
  Sender: FDA-Public Use
  Company Number: None

PATIENT
  Age: 48 Year
  Sex: Male

DRUGS (1)
  1. GEODON [Suspect]
     Indication: PSYCHOTIC DISORDER
     Dosage: 10MG,  IM
     Route: 030
     Dates: start: 20050318

REACTIONS (4)
  - AGGRESSION [None]
  - ASPIRATION [None]
  - NEUROLEPTIC MALIGNANT SYNDROME [None]
  - SENSORY LOSS [None]
